FAERS Safety Report 10194826 (Version 2)
Quarter: 2014Q2

REPORT INFORMATION
  Report Type: Spontaneous
  Country: SE (occurrence: SE)
  Receive Date: 20140526
  Receipt Date: 20140526
  Transmission Date: 20141212
  Serious: Yes (Other)
  Sender: FDA-Public Use
  Company Number: SE-PFIZER INC-2013225833

PATIENT
  Age: 54 Year
  Sex: Male

DRUGS (6)
  1. DETRUSITOL [Suspect]
     Indication: URINARY TRACT DISORDER
     Dosage: 10 MG, UNK
  2. DETRUSITOL [Suspect]
     Dosage: 5 MG X 2, UNK
  3. APROVEL [Concomitant]
     Indication: BLOOD PRESSURE
     Dosage: UNK
  4. OMEPRAZOL [Concomitant]
     Dosage: UNK
  5. VIAGRA [Concomitant]
     Dosage: 50 MG, UNK
  6. VIAGRA [Concomitant]
     Dosage: 100 MG, UNK

REACTIONS (2)
  - Loss of consciousness [Unknown]
  - Asthenia [Unknown]
